FAERS Safety Report 7397181-7 (Version None)
Quarter: 2011Q2

REPORT INFORMATION
  Report Type: 
  Country: None (occurrence: None)
  Receive Date: 20110406
  Receipt Date: 20100909
  Transmission Date: 20111010
  Serious: No
  Sender: FDA-Public Use
  Company Number: PHHY2010DE19605

PATIENT
  Age: 55 Year
  Sex: Female

DRUGS (4)
  1. METOPROLOL [Interacting]
     Dosage: UNK
     Dates: start: 20091201
  2. ZOMETA [Concomitant]
     Indication: PROPHYLAXIS
     Dosage: EVERY SIX MONTHS
  3. FEMARA [Suspect]
     Indication: BREAST CANCER
     Dosage: 2.5 MG DAILY
     Route: 048
     Dates: start: 20091116, end: 20100521
  4. IBUPROFEN [Concomitant]
     Indication: PAIN
     Dosage: 600, IF REQUIRED
     Route: 048

REACTIONS (10)
  - SLEEP DISORDER [None]
  - ARTHRALGIA [None]
  - BALANCE DISORDER [None]
  - TACHYCARDIA [None]
  - DIZZINESS [None]
  - MYALGIA [None]
  - HYPERCHOLESTEROLAEMIA [None]
  - MUSCULOSKELETAL PAIN [None]
  - DRUG INTERACTION [None]
  - HEADACHE [None]
